FAERS Safety Report 12838885 (Version 1)
Quarter: 2016Q4

REPORT INFORMATION
  Report Type: Spontaneous
  Country: US (occurrence: US)
  Receive Date: 20161012
  Receipt Date: 20161012
  Transmission Date: 20170207
  Serious: No
  Sender: FDA-Public Use
  Company Number: US-PFIZER INC-2016467319

PATIENT
  Age: 62 Year
  Sex: Male

DRUGS (4)
  1. MORPHINE SULFATE. [Suspect]
     Active Substance: MORPHINE SULFATE
     Indication: PAIN
     Dosage: 15 MG, AS NEEDED (AT BDTIME HS)
     Route: 048
  2. MENTHOL W/METHYL SALICYLATE [Suspect]
     Active Substance: MENTHOL\METHYL SALICYLATE
     Indication: ANALGESIC THERAPY
     Dosage: 1 APPLICATION TOPICALLY, TWICE A DAY AS NEEDED
     Route: 061
  3. NORVASC [Suspect]
     Active Substance: AMLODIPINE BESYLATE
     Dosage: 10 MG, UNK (1700)
     Route: 048
  4. APAP W/HYDROCODONE [Suspect]
     Active Substance: ACETAMINOPHEN\HYDROCODONE
     Indication: PAIN
     Dosage: 1 DF, AS NEEDED [HYDROCODONE 10]/ [PARACETAMOL 325] (TID) (3X A DAY)
     Route: 048
     Dates: end: 20160925

REACTIONS (4)
  - Constipation [Unknown]
  - Spinal osteoarthritis [Unknown]
  - Hepatic steatosis [Unknown]
  - Umbilical hernia [Unknown]
